FAERS Safety Report 11235361 (Version 1)
Quarter: 2015Q2

REPORT INFORMATION
  Report Type: Spontaneous
  Country: RU (occurrence: None)
  Receive Date: 20150630
  Receipt Date: 20150630
  Transmission Date: 20150821
  Serious: Yes (Hospitalization)
  Sender: FDA-Public Use
  Company Number: 1506RUS012290

PATIENT

DRUGS (1)
  1. CEDAX [Suspect]
     Active Substance: CEFTIBUTEN DIHYDRATE
     Indication: OTITIS MEDIA
     Route: 048

REACTIONS (1)
  - Drug ineffective [None]
